FAERS Safety Report 17043677 (Version 1)
Quarter: 2019Q4

REPORT INFORMATION
  Report Type: Report from Study
  Country: US (occurrence: US)
  Receive Date: 20191118
  Receipt Date: 20191118
  Transmission Date: 20200122
  Serious: Yes (Death)
  Sender: FDA-Public Use
  Company Number: US-PFIZER INC-10367

PATIENT

DRUGS (3)
  1. G-CSF [Suspect]
     Active Substance: GRANULOCYTE COLONY-STIMULATING FACTOR NOS
     Indication: SMALL CELL LUNG CANCER EXTENSIVE STAGE
     Dosage: 5 UG/KG, CYCLIC (BEGINNING ON THE SIXTH DAY (24 HOURS AFTER THE LAST DOSE OF TOPOTECAN), SUPPORT, O
     Route: 058
     Dates: start: 199710
  2. PACLITAXEL. [Suspect]
     Active Substance: PACLITAXEL
     Indication: SMALL CELL LUNG CANCER EXTENSIVE STAGE
     Dosage: 175 MG/M2, CYCLIC (OVER 3 HOURS ON DAY 1 PRIOR TO TOPOTECAN)
     Route: 042
     Dates: start: 199710
  3. TOPOTECAN HYDROCHLORIDE. [Suspect]
     Active Substance: TOPOTECAN HYDROCHLORIDE
     Indication: SMALL CELL LUNG CANCER EXTENSIVE STAGE
     Dosage: 1 MG/M2, CYCLIC (DAILY, ON DAYS 1-5)
     Route: 042
     Dates: start: 199710

REACTIONS (1)
  - Pneumonia [Fatal]
